FAERS Safety Report 14773930 (Version 3)
Quarter: 2018Q2

REPORT INFORMATION
  Report Type: Spontaneous
  Country: FR (occurrence: FR)
  Receive Date: 20180418
  Receipt Date: 20180524
  Transmission Date: 20180711
  Serious: Yes (Other)
  Sender: FDA-Public Use
  Company Number: FR-ASTELLAS-2018US017965

PATIENT
  Age: 79 Year
  Sex: Female

DRUGS (3)
  1. VESICARE [Suspect]
     Active Substance: SOLIFENACIN SUCCINATE
     Indication: PRODUCT USED FOR UNKNOWN INDICATION
     Route: 065
     Dates: start: 20180204, end: 20180404
  2. PERINDOPRIL [Concomitant]
     Active Substance: PERINDOPRIL
     Indication: HYPERTENSION
     Dosage: 1 DF(25 UNSPECIFIED UNIT), ONCE DAILY
     Route: 065
  3. LEVOTHYROX [Concomitant]
     Active Substance: LEVOTHYROXINE
     Indication: HYPOTHYROIDISM
     Route: 065

REACTIONS (15)
  - Suffocation feeling [Unknown]
  - Dry mouth [Recovering/Resolving]
  - Fatigue [Unknown]
  - Somnolence [Unknown]
  - Depression [Recovering/Resolving]
  - Dysphonia [Unknown]
  - Phobia [Unknown]
  - Vertigo [Unknown]
  - Dry throat [Recovering/Resolving]
  - Dizziness [Unknown]
  - Aphonia [Unknown]
  - Nausea [Unknown]
  - Oral infection [Unknown]
  - Confusional state [Unknown]
  - Urinary tract infection [Unknown]

NARRATIVE: CASE EVENT DATE: 20180304
